FAERS Safety Report 6060593-8 (Version None)
Quarter: 2009Q1

REPORT INFORMATION
  Report Type: 
  Country: None (occurrence: None)
  Receive Date: 20090130
  Receipt Date: 20090130
  Transmission Date: 20090719
  Serious: Yes (Death)
  Sender: FDA-Public Use
  Company Number: None

PATIENT
  Age: 80 Year
  Sex: Male
  Weight: 99 kg

DRUGS (23)
  1. GEODON [Suspect]
     Indication: AGITATION
     Dosage: 20 MG X1 IV
     Route: 042
     Dates: start: 20090122
  2. ALBUTEROL [Concomitant]
  3. ASPIRIN [Concomitant]
  4. CELEBREX [Concomitant]
  5. CLARITEN [Concomitant]
  6. COLCHICINE [Concomitant]
  7. COREG [Concomitant]
  8. LASIX [Concomitant]
  9. IMDUR [Concomitant]
  10. LEVAQUIN [Concomitant]
  11. LISINOPRIL [Concomitant]
  12. MAG-OX [Concomitant]
  13. MICRO-K [Concomitant]
  14. PRAVASTATIN [Concomitant]
  15. RISPERDAL [Concomitant]
  16. MULTIPLE VITAMIN [Concomitant]
  17. TRAZODONE HCL [Concomitant]
  18. ROBITUSSIN-DM [Concomitant]
  19. HALDOL [Concomitant]
  20. MILK OF MAGNESIA [Concomitant]
  21. MORPHINE [Concomitant]
  22. NOVOLOG [Concomitant]
  23. TYLENOL [Concomitant]

REACTIONS (6)
  - BLOOD PRESSURE DECREASED [None]
  - COLD SWEAT [None]
  - INCORRECT ROUTE OF DRUG ADMINISTRATION [None]
  - MEDICATION ERROR [None]
  - OXYGEN SATURATION DECREASED [None]
  - UNRESPONSIVE TO STIMULI [None]
